FAERS Safety Report 20389847 (Version 1)
Quarter: 2022Q1

REPORT INFORMATION
  Report Type: Spontaneous
  Country: US (occurrence: US)
  Receive Date: 20220128
  Receipt Date: 20220128
  Transmission Date: 20220424
  Serious: No
  Sender: FDA-Public Use
  Company Number: US-ALLERGAN-2118863US

PATIENT

DRUGS (1)
  1. BOTOX [Suspect]
     Active Substance: ONABOTULINUMTOXINA
     Indication: Skin wrinkling
     Dosage: UNK, SINGLE
     Dates: start: 202104, end: 202104

REACTIONS (4)
  - Electric shock sensation [Unknown]
  - Injection site bruising [Recovered/Resolved]
  - Hypoaesthesia [Unknown]
  - Paraesthesia [Unknown]
